FAERS Safety Report 17390395 (Version 2)
Quarter: 2020Q1

REPORT INFORMATION
  Report Type: Spontaneous
  Country: CA (occurrence: CA)
  Receive Date: 20200207
  Receipt Date: 20200312
  Transmission Date: 20200409
  Serious: Yes (Other)
  Sender: FDA-Public Use
  Company Number: NVSC2020CA030301

PATIENT

DRUGS (3)
  1. INDOMETHACIN. [Suspect]
     Active Substance: INDOMETHACIN
     Indication: FOETAL EXPOSURE DURING PREGNANCY
     Dosage: MATERNAL DOSE (SINGLE RECTAL DOSE OF 100 MG)
     Route: 064
  2. INDOMETHACIN. [Suspect]
     Active Substance: INDOMETHACIN
     Dosage: MATERNAL DOSE: 25 MG FOUR TIMES
     Route: 064
  3. IBUPROFENE [Suspect]
     Active Substance: IBUPROFEN
     Indication: FOETAL EXPOSURE DURING PREGNANCY
     Dosage: MATERNAL DOSE: FOR 10 DAYS, 400 MG FOUR TIMES A DAY)
     Route: 064

REACTIONS (4)
  - Foetal exposure during pregnancy [Unknown]
  - Renal failure neonatal [Unknown]
  - Premature baby [Unknown]
  - Neonatal respiratory failure [Unknown]
